FAERS Safety Report 15407246 (Version 1)
Quarter: 2018Q3

REPORT INFORMATION
  Report Type: Spontaneous
  Country: US (occurrence: US)
  Receive Date: 20180920
  Receipt Date: 20180920
  Transmission Date: 20181010
  Serious: No
  Sender: FDA-Public Use
  Company Number: US-SA-2018SA260887

PATIENT
  Age: 3 Year
  Sex: Female
  Weight: 14.06 kg

DRUGS (14)
  1. NORMAL SALINE [Concomitant]
     Active Substance: SODIUM CHLORIDE
     Indication: FLUSHING
     Dosage: 0.9 %, PRN
     Route: 042
     Dates: start: 20180607
  2. CIPRODEX [CIPROFLOXACIN LACTATE] [Concomitant]
     Dosage: 2 DROPS, BID
     Dates: start: 20180625
  3. ACETAMINOPHEN. [Concomitant]
     Active Substance: ACETAMINOPHEN
     Indication: PREMEDICATION
     Dosage: 160 MG, PRN
     Dates: start: 20180607
  4. NORMAL SALINE [Concomitant]
     Active Substance: SODIUM CHLORIDE
     Indication: ANAPHYLACTIC REACTION
     Dosage: 240 ML, PRN
     Route: 042
     Dates: start: 20180607
  5. SODIUM CHLORIDE. [Concomitant]
     Active Substance: SODIUM CHLORIDE
     Indication: FLUSHING
     Dosage: 0.9 %
     Route: 042
     Dates: start: 20180607
  6. LIDOCAINE AND PRILOCAINE [Concomitant]
     Active Substance: LIDOCAINE\PRILOCAINE
     Indication: PREMEDICATION
     Dosage: 2.5 %
     Dates: start: 20180607
  7. ENALAPRIL [Concomitant]
     Active Substance: ENALAPRIL
     Dosage: 1.5 ML, BID
     Route: 048
     Dates: start: 20180124
  8. AUGMENTIN [AMOXICILLIN;CLAVULANATE POTASSIUM] [Concomitant]
     Dosage: 3.75 ML, BID
     Route: 048
     Dates: start: 20180904
  9. ACETAMINOPHEN. [Concomitant]
     Active Substance: ACETAMINOPHEN
     Indication: PROPHYLAXIS
  10. ALDURAZYME [Suspect]
     Active Substance: LARONIDASE
     Dosage: 8.7 MG, QW
     Route: 041
     Dates: start: 20180125
  11. EPINEPHRINE. [Concomitant]
     Active Substance: EPINEPHRINE
     Indication: ANAPHYLACTIC REACTION
     Dosage: 0.15 MG
     Route: 030
     Dates: start: 20180607
  12. DIPHENHYDRAMINE. [Concomitant]
     Active Substance: DIPHENHYDRAMINE
     Indication: PREMEDICATION
     Dosage: 12.5 MG
     Route: 048
     Dates: start: 20180607
  13. DIPHENHYDRAMINE. [Concomitant]
     Active Substance: DIPHENHYDRAMINE
     Indication: PROPHYLAXIS
     Dosage: 12 MG, PRN
     Route: 042
     Dates: start: 20180607
  14. HEPARIN [Concomitant]
     Active Substance: HEPARIN SODIUM
     Indication: FLUSHING
     Dosage: 100 UN/ML
     Route: 042
     Dates: start: 20180607

REACTIONS (1)
  - Device issue [Unknown]
